FAERS Safety Report 9682583 (Version 2)
Quarter: 2013Q4

REPORT INFORMATION
  Report Type: Spontaneous
  Country: DE (occurrence: DE)
  Receive Date: 20131112
  Receipt Date: 20131126
  Transmission Date: 20140711
  Serious: Yes (Death, Hospitalization, Other)
  Sender: FDA-Public Use
  Company Number: DE-UCBSA-102513

PATIENT
  Age: 83 Year
  Sex: Male
  Weight: 90 kg

DRUGS (1)
  1. KEPPRA [Suspect]
     Route: 048
     Dates: start: 2013, end: 2013

REACTIONS (4)
  - Death [Fatal]
  - Coma [Unknown]
  - Cerebrovascular accident [Unknown]
  - Somnolence [Unknown]
